FAERS Safety Report 11052493 (Version 1)
Quarter: 2015Q2

REPORT INFORMATION
  Report Type: Spontaneous
  Country: FR (occurrence: None)
  Receive Date: 20150417
  Receipt Date: 20150417
  Transmission Date: 20150821
  Serious: Yes (Hospitalization)
  Sender: FDA-Public Use
  Company Number: 2822545

PATIENT
  Age: 15 Month
  Sex: Female
  Weight: 8.1 kg

DRUGS (4)
  1. VINCRISTINE SULFATE. [Suspect]
     Active Substance: VINCRISTINE SULFATE
     Indication: CHEMOTHERAPY
     Dosage: .4 MG MILLIGRAM(S), UNKNOWN, UNKNOWN
     Dates: start: 20150202, end: 20150206
  2. ENDOXAN /00021101/ [Suspect]
     Active Substance: CYCLOPHOSPHAMIDE
     Indication: CHEMOTHERAPY
     Dosage: 81 MG MILLIGRAM(S), UNKNOWN, UNKNOWN
     Dates: start: 20150202, end: 20150206
  3. DOXORUBICIN ACCORD [Suspect]
     Active Substance: DOXORUBICIN HYDROCHLORIDE
     Indication: CHEMOTHERAPY
     Dosage: 8 MG MILLIGRAM(S), UNKNOWN, UNKNOWN
     Dates: start: 20150205, end: 20150206
  4. BIONOLYTE [Concomitant]
     Active Substance: UNSPECIFIED INGREDIENT

REACTIONS (1)
  - Bone marrow failure [None]

NARRATIVE: CASE EVENT DATE: 20150205
